FAERS Safety Report 18471795 (Version 5)
Quarter: 2020Q4

REPORT INFORMATION
  Report Type: Report from Study
  Country: None (occurrence: BE)
  Receive Date: 20201105
  Receipt Date: 20201217
  Transmission Date: 20210114
  Serious: Yes (Death, Life-Threatening, Hospitalization)
  Sender: FDA-Public Use
  Company Number: BE-ABBVIE-20K-013-3636429-00

PATIENT
  Age: 71 Year
  Sex: Male

DRUGS (3)
  1. DUODOPA [Suspect]
     Active Substance: CARBIDOPA\LEVODOPA
     Dosage: MD=4ML, CD=2ML/HR DURING 16HRS, ED=1.5ML
     Route: 050
     Dates: start: 20201102, end: 202011
  2. DUODOPA [Suspect]
     Active Substance: CARBIDOPA\LEVODOPA
     Dosage: MD=4ML, CD=2ML/HR DURING 16HRS, ED=1.5ML
     Route: 050
     Dates: start: 20200605, end: 20201102
  3. DUODOPA [Suspect]
     Active Substance: CARBIDOPA\LEVODOPA
     Indication: PARKINSON^S DISEASE
     Dosage: UNKNOWN DOSAGES
     Route: 050
     Dates: start: 20080303, end: 20200605

REACTIONS (6)
  - Urinary tract infection [Unknown]
  - Intentional medical device removal by patient [Not Recovered/Not Resolved]
  - Death [Fatal]
  - General physical health deterioration [Unknown]
  - Off label use [Recovered/Resolved]
  - Device issue [Unknown]

NARRATIVE: CASE EVENT DATE: 20201213
